FAERS Safety Report 6168913-0 (Version None)
Quarter: 2009Q2

REPORT INFORMATION
  Report Type: 
  Country: None (occurrence: None)
  Receive Date: 20090427
  Receipt Date: 20090422
  Transmission Date: 20091009
  Serious: No
  Sender: FDA-Public Use
  Company Number: US-JNJFOC-20090405948

PATIENT
  Sex: Female
  Weight: 86.18 kg

DRUGS (4)
  1. DURAGESIC-100 [Suspect]
     Indication: BACK PAIN
     Route: 062
  2. NORCO [Concomitant]
     Indication: PAIN
     Route: 048
  3. SOMA [Concomitant]
     Indication: PAIN
     Route: 048
  4. MORPHINE [Concomitant]
     Indication: PAIN
     Route: 048

REACTIONS (1)
  - WRONG TECHNIQUE IN DRUG USAGE PROCESS [None]
